FAERS Safety Report 4743584-6 (Version None)
Quarter: 2005Q3

REPORT INFORMATION
  Report Type: 
  Country: None (occurrence: None)
  Receive Date: 20050809
  Receipt Date: 20050729
  Transmission Date: 20060218
  Serious: Yes (Other)
  Sender: FDA-Public Use
  Company Number: 2005FR-00167

PATIENT
  Age: 1 Year
  Sex: Male
  Weight: 10 kg

DRUGS (2)
  1. IBUPROFEN [Suspect]
     Indication: PYREXIA
     Dosage: 100MG, TDS, ORAL
     Route: 048
     Dates: start: 20050711, end: 20050714
  2. CALPOL (PARACETAMOL [ACETAMINOPHEN] [Suspect]
     Indication: PYREXIA
     Dosage: 120MG, QDS,ORAL
     Route: 048
     Dates: start: 20050711

REACTIONS (1)
  - HAEMATEMESIS [None]
